FAERS Safety Report 23078677 (Version 5)
Quarter: 2023Q4

REPORT INFORMATION
  Report Type: Spontaneous
  Country: HU (occurrence: None)
  Receive Date: 20231018
  Receipt Date: 20231225
  Transmission Date: 20240109
  Serious: Yes (Death, Hospitalization, Other)
  Sender: FDA-Public Use
  Company Number: 2023A232172

PATIENT
  Age: 485 Month
  Sex: Female

DRUGS (1)
  1. SAPHNELO [Suspect]
     Active Substance: ANIFROLUMAB-FNIA
     Indication: Systemic lupus erythematosus
     Route: 042
     Dates: start: 20230913

REACTIONS (2)
  - Meningoencephalitis herpetic [Fatal]
  - Herpes zoster [Fatal]

NARRATIVE: CASE EVENT DATE: 20231011
